FAERS Safety Report 7730962-6 (Version None)
Quarter: 2011Q3

REPORT INFORMATION
  Report Type: 
  Country: None (occurrence: None)
  Receive Date: 20110906
  Receipt Date: 20110826
  Transmission Date: 20111222
  Serious: Yes (Hospitalization, Other)
  Sender: FDA-Public Use
  Company Number: US-ASTRAZENECA-2011SE49550

PATIENT
  Age: 72 Year
  Sex: Female

DRUGS (30)
  1. SEROQUEL [Suspect]
     Indication: NEUROTRANSMITTER LEVEL ALTERED
     Route: 048
     Dates: start: 20000101
  2. LISINOPRIL [Concomitant]
     Indication: HYPERTENSION
  3. LISINOPRIL [Concomitant]
  4. LOVAZA [Concomitant]
     Indication: HYPERCHOLESTEROLAEMIA
  5. INSULIN [Concomitant]
  6. POTASSIUM CHLORIDE [Concomitant]
     Indication: BLOOD POTASSIUM DECREASED
  7. TART CHERRY [Concomitant]
     Indication: ARTHRITIS
     Dosage: BID
  8. GABAPENTIN [Concomitant]
     Indication: NERVE INJURY
  9. LOVAZA [Concomitant]
     Indication: HYPOTRIGLYCERIDAEMIA
  10. COLCRYS [Concomitant]
     Indication: ARTHRITIS
  11. LEVOTHYROXINE SODIUM [Concomitant]
     Indication: THYROID DISORDER
  12. ASCORBIC ACID [Concomitant]
     Indication: NEUROPATHY PERIPHERAL
  13. COQ10 [Concomitant]
     Indication: CARDIAC DISORDER
  14. ALLOPURINOL [Concomitant]
     Indication: ARTHRITIS
  15. CLONAPINE [Concomitant]
     Indication: SLEEP DISORDER
  16. HUMULIN R [Concomitant]
     Indication: DIABETES MELLITUS
     Dosage: 70/30 25UNITS IN MORNING AND 15 UNITS AT NIGHT
  17. LACTULOSE [Concomitant]
     Indication: LIVER DISORDER
  18. LOPID [Concomitant]
     Indication: HYPERCHOLESTEROLAEMIA
  19. VITAMIN D [Concomitant]
     Indication: NEUROPATHY PERIPHERAL
  20. FOLATE ACID [Concomitant]
     Indication: NEUROPATHY PERIPHERAL
  21. SEROQUEL [Suspect]
     Indication: BIPOLAR DISORDER
     Route: 048
     Dates: start: 20000101
  22. CLONAPINE [Concomitant]
     Indication: FEELING OF RELAXATION
  23. PRILOSEC OTC [Concomitant]
     Indication: GASTROOESOPHAGEAL REFLUX DISEASE
  24. TRAMADOL HYDROCHLORIDE [Concomitant]
     Indication: PAIN
     Dosage: AS REQUIRED
  25. ASPIRIN [Concomitant]
     Indication: CARDIAC DISORDER
  26. DOXEPIN [Concomitant]
     Indication: ANTIDEPRESSANT THERAPY
  27. LIMBREL [Concomitant]
     Indication: ARTHRITIS
     Route: 048
  28. ALLEGRA [Concomitant]
     Indication: SEASONAL ALLERGY
     Dosage: TAKES EVERY 3 MONTHS OR WHEN HAS ALLERGIES
  29. VITAMIN E [Concomitant]
     Indication: CARDIAC DISORDER
  30. VITAMIN E [Concomitant]
     Indication: MEMORY IMPAIRMENT

REACTIONS (20)
  - ENDOMETRIAL CANCER [None]
  - GOUT [None]
  - ADVERSE DRUG REACTION [None]
  - MALAISE [None]
  - FATIGUE [None]
  - HEPATIC FAILURE [None]
  - CARDIAC MURMUR [None]
  - HYPERTENSION [None]
  - INSOMNIA [None]
  - DIABETES MELLITUS [None]
  - RENAL FAILURE CHRONIC [None]
  - NEUROPATHY PERIPHERAL [None]
  - BLOOD CHOLESTEROL INCREASED [None]
  - OVARIAN CANCER [None]
  - OSTEOARTHRITIS [None]
  - NEOPLASM MALIGNANT [None]
  - THYROID DISORDER [None]
  - DRUG PRESCRIBING ERROR [None]
  - PSYCHOMOTOR HYPERACTIVITY [None]
  - WRONG TECHNIQUE IN DRUG USAGE PROCESS [None]
